FAERS Safety Report 4598005-3 (Version None)
Quarter: 2005Q2

REPORT INFORMATION
  Report Type: 
  Country: None (occurrence: None)
  Receive Date: 20050211
  Receipt Date: 20030414
  Transmission Date: 20051028
  Serious: Yes (Other)
  Sender: FDA-Public Use
  Company Number: M2003.3814

PATIENT
  Age: 63 Year
  Sex: Female
  Weight: 68.0396 kg

DRUGS (6)
  1. ALPRAZOLAM 0.25MG (GENEVA MANUFACTURER) [Suspect]
     Indication: INSOMNIA
     Dosage: ORAL .25MG BID
     Dates: end: 20030224
  2. LORAZEPAM (MYLAN MANUFACTURER) [Suspect]
     Indication: ANXIETY
     Dosage: ORAL .25MG BID
     Route: 048
     Dates: start: 20020901, end: 20030224
  3. LORAZEPAM [Concomitant]
  4. ESTROGEN [Concomitant]
  5. PROGESTERONE [Concomitant]
  6. MULTI-VITAMIN [Concomitant]

REACTIONS (1)
  - UNEVALUABLE EVENT [None]
